FAERS Safety Report 6552052-0 (Version None)
Quarter: 2010Q1

REPORT INFORMATION
  Report Type: 
  Country: None (occurrence: None)
  Receive Date: 20100120
  Receipt Date: 20100106
  Transmission Date: 20100710
  Serious: Yes (Other)
  Sender: FDA-Public Use
  Company Number: JHP201000010

PATIENT
  Age: 28 Year
  Sex: Male

DRUGS (1)
  1. KETALAR [Suspect]
     Indication: DRUG ABUSER

REACTIONS (3)
  - BIOPSY BLADDER ABNORMAL [None]
  - CYSTITIS ULCERATIVE [None]
  - DRUG ABUSE [None]
